FAERS Safety Report 25678157 (Version 1)
Quarter: 2025Q3

REPORT INFORMATION
  Report Type: Spontaneous
  Country: US (occurrence: US)
  Receive Date: 20250813
  Receipt Date: 20250813
  Transmission Date: 20251021
  Serious: No
  Sender: GALDERMA
  Company Number: US-GALDERMA-US2025008264

PATIENT

DRUGS (1)
  1. NEMLUVIO [Suspect]
     Active Substance: NEMOLIZUMAB-ILTO
     Indication: Neurodermatitis
     Route: 058
     Dates: start: 20250510

REACTIONS (5)
  - Paraesthesia [Unknown]
  - Electric shock sensation [Unknown]
  - Skin weeping [Unknown]
  - Skin induration [Unknown]
  - Scab [Unknown]

NARRATIVE: CASE EVENT DATE: 20250501
